FAERS Safety Report 4899492-3 (Version None)
Quarter: 2006Q1

REPORT INFORMATION
  Report Type: 
  Country: None (occurrence: None)
  Receive Date: 20060131
  Receipt Date: 20060127
  Transmission Date: 20060701
  Serious: No
  Sender: FDA-Public Use
  Company Number: A044-002-005930

PATIENT
  Age: 74 Year
  Sex: Male

DRUGS (6)
  1. ARICEPT [Suspect]
     Dosage: 5 MG, 1 IN 1 D, ORAL; SEE IMAGE
     Route: 048
     Dates: start: 20030201, end: 20050808
  2. ARICEPT [Suspect]
     Dosage: 5 MG, 1 IN 1 D, ORAL; SEE IMAGE
     Route: 048
     Dates: start: 20050809
  3. RISPERDAL [Suspect]
     Dosage: 0.5 MG, 1 IN 1 D, ORAL; SEE IMAGE
     Route: 048
     Dates: start: 20050809, end: 20050815
  4. RISPERDAL [Suspect]
     Dosage: 0.5 MG, 1 IN 1 D, ORAL; SEE IMAGE
     Route: 048
     Dates: start: 20050816, end: 20050905
  5. RISPERDAL [Suspect]
     Dosage: 0.5 MG, 1 IN 1 D, ORAL; SEE IMAGE
     Route: 048
     Dates: start: 20050906, end: 20050908
  6. DIPIPERON (PIPAMPERONE) [Suspect]
     Dosage: 20 MG, 1 IN 1 D, ORAL
     Route: 048
     Dates: start: 20050803, end: 20050811

REACTIONS (1)
  - PLEUROTHOTONUS [None]
